FAERS Safety Report 6541857-8 (Version None)
Quarter: 2010Q1

REPORT INFORMATION
  Report Type: 
  Country: None (occurrence: None)
  Receive Date: 20100119
  Receipt Date: 20100115
  Transmission Date: 20100710
  Serious: Yes (Death)
  Sender: FDA-Public Use
  Company Number: PHHY2010JP02314

PATIENT
  Sex: Female

DRUGS (3)
  1. NEORAL [Suspect]
     Indication: APLASTIC ANAEMIA
     Dosage: 250 MG DAILY
     Route: 048
     Dates: start: 20070801
  2. NEORAL [Suspect]
     Dosage: 50 MG DAILY
     Route: 048
     Dates: end: 20090801
  3. STEROIDS NOS [Concomitant]

REACTIONS (1)
  - PULMONARY TUBERCULOSIS [None]
